FAERS Safety Report 13965521 (Version 2)
Quarter: 2017Q3

REPORT INFORMATION
  Report Type: Spontaneous
  Country: BR (occurrence: BR)
  Receive Date: 20170913
  Receipt Date: 20170915
  Transmission Date: 20171128
  Serious: Yes (Other)
  Sender: FDA-Public Use
  Company Number: BR-JNJFOC-20170812588

PATIENT
  Sex: Female

DRUGS (1)
  1. REMICADE [Suspect]
     Active Substance: INFLIXIMAB
     Indication: PRODUCT USED FOR UNKNOWN INDICATION
     Route: 042

REACTIONS (4)
  - Pharyngitis [Unknown]
  - Intervertebral disc protrusion [Recovering/Resolving]
  - Abdominal pain upper [Unknown]
  - Incision site pain [Unknown]

NARRATIVE: CASE EVENT DATE: 201708
